FAERS Safety Report 20357577 (Version 1)
Quarter: 2022Q1

REPORT INFORMATION
  Report Type: Other
  Country: CA (occurrence: None)
  Receive Date: 20220120
  Receipt Date: 20220120
  Transmission Date: 20220423
  Serious: No
  Sender: FDA-Public Use
  Company Number: CA-ROCHE-3003983

PATIENT
  Age: 31 Year
  Sex: Female

DRUGS (3)
  1. OCREVUS [Suspect]
     Active Substance: OCRELIZUMAB
     Indication: Relapsing-remitting multiple sclerosis
     Dosage: 300 MG AT DAY 0 AND 14, THEN 600 MG EVERY 6 MONTH
     Route: 042
     Dates: start: 20200722
  2. MODAFINIL [Concomitant]
     Active Substance: MODAFINIL
     Dosage: EVERY ONCE IN A WHILE, HASN^T TAKE IT FOR A MONTH)
  3. GABAPENTIN [Concomitant]
     Active Substance: GABAPENTIN
     Dosage: HASN^T TAKEN IT FOR A WHILE

REACTIONS (1)
  - SARS-CoV-2 test positive [Not Recovered/Not Resolved]

NARRATIVE: CASE EVENT DATE: 20220114
